FAERS Safety Report 4266032-1 (Version None)
Quarter: 2004Q1

REPORT INFORMATION
  Report Type: 
  Country: None (occurrence: None)
  Receive Date: 20040106
  Receipt Date: 20031224
  Transmission Date: 20041129
  Serious: Yes (Hospitalization)
  Sender: FDA-Public Use
  Company Number: 2003126700

PATIENT
  Age: 65 Year
  Sex: Male

DRUGS (4)
  1. NORVASC [Suspect]
     Indication: HYPERTENSION
     Dosage: 5 MG, ORAL
     Route: 048
     Dates: start: 20031117
  2. FURUSULTIAMINE (FURUSLTIAMINE) [Concomitant]
  3. TROXIPIDE (TROXIPIDE) [Concomitant]
  4. ANTIPSYCHOTICS [Concomitant]

REACTIONS (2)
  - DEPRESSED LEVEL OF CONSCIOUSNESS [None]
  - MENTAL DISORDER [None]
